FAERS Safety Report 17304132 (Version 1)
Quarter: 2020Q1

REPORT INFORMATION
  Report Type: Spontaneous
  Country: US (occurrence: US)
  Receive Date: 20200103
  Receipt Date: 20200103
  Transmission Date: 20200409
  Serious: Yes (Death, Hospitalization)
  Sender: FDA-Public Use
  Company Number: None

PATIENT
  Age: 70 Year
  Sex: Male
  Weight: 88.5 kg

DRUGS (7)
  1. ASPIRIN. [Concomitant]
     Active Substance: ASPIRIN
  2. LIPITOR [Concomitant]
     Active Substance: ATORVASTATIN CALCIUM
  3. METOPROLOL. [Concomitant]
     Active Substance: METOPROLOL
  4. GLIPIZIDE. [Concomitant]
     Active Substance: GLIPIZIDE
  5. CISPLATIN. [Suspect]
     Active Substance: CISPLATIN
     Dates: end: 20191204
  6. ETOPOSIDE (VP-16) [Suspect]
     Active Substance: ETOPOSIDE
     Dates: end: 20191204
  7. LISINOPRIL. [Concomitant]
     Active Substance: LISINOPRIL

REACTIONS (18)
  - Hypophagia [None]
  - Arrhythmia [None]
  - Tachycardia [None]
  - Dehydration [None]
  - Myocardial necrosis marker increased [None]
  - Extrasystoles [None]
  - Cardio-respiratory arrest [None]
  - Diarrhoea [None]
  - Odynophagia [None]
  - Hypotension [None]
  - Brain natriuretic peptide increased [None]
  - Pancytopenia [None]
  - Asthenia [None]
  - Lactic acidosis [None]
  - Dyspnoea [None]
  - Oesophagitis [None]
  - Ventricular tachycardia [None]
  - Anaemia [None]

NARRATIVE: CASE EVENT DATE: 20191218
